FAERS Safety Report 7763632 (Version 3)
Quarter: 2013Q2

REPORT INFORMATION
  Report Type: Report from Study
  Country: BR (occurrence: BR)
  Receive Date: 20110118
  Receipt Date: 20130611
  Transmission Date: 20140414
  Serious: Yes (Death, Hospitalization, Other)
  Sender: FDA-Public Use
  Company Number: BR-ROCHE-701963

PATIENT
  Age: 65 Year
  Sex: Female
  Weight: 69 kg

DRUGS (11)
  1. ACTEMRA [Suspect]
     Indication: RHEUMATOID ARTHRITIS
     Route: 042
     Dates: start: 20091118, end: 201012
  2. CEFTRIAXONE SODIUM [Suspect]
     Indication: PRODUCT USED FOR UNKNOWN INDICATION
     Route: 065
  3. RITUXIMAB [Suspect]
     Indication: RHEUMATOID ARTHRITIS
     Route: 065
     Dates: start: 20111118
  4. SYNTHROID [Concomitant]
     Route: 048
  5. ABLOK PLUS [Concomitant]
     Dosage: STRENGTH: 50-125 MG, DRUG NAME: ABLOCK PLUS
     Route: 048
  6. METICORTEN [Concomitant]
     Route: 065
  7. CALTRATE [Concomitant]
     Route: 048
  8. ASPIRINA [Concomitant]
     Route: 065
  9. AMLODIPINE [Concomitant]
  10. TOLREST [Concomitant]
     Route: 048
  11. JANUMET [Concomitant]
     Route: 048

REACTIONS (7)
  - Pneumonia [Fatal]
  - Spinal operation [Unknown]
  - Gait disturbance [Recovering/Resolving]
  - Diarrhoea [Unknown]
  - Vomiting [Unknown]
  - Hypersensitivity [Unknown]
  - Fracture [Unknown]
